FAERS Safety Report 5603144-1 (Version None)
Quarter: 2008Q1

REPORT INFORMATION
  Report Type: 
  Country: None (occurrence: None)
  Receive Date: 20080125
  Receipt Date: 20080117
  Transmission Date: 20080703
  Serious: Yes (Death, Life-Threatening, Hospitalization)
  Sender: FDA-Public Use
  Company Number: CA-PFIZER INC-2007106578

PATIENT
  Sex: Male
  Weight: 78 kg

DRUGS (6)
  1. SU-011,248 [Suspect]
     Indication: LUNG NEOPLASM MALIGNANT
     Route: 048
     Dates: start: 20071119, end: 20071130
  2. SU-011,248 [Suspect]
     Route: 048
     Dates: start: 20071203, end: 20071201
  3. PANTOPRAZOLE [Concomitant]
     Route: 048
     Dates: start: 20070831, end: 20071007
  4. PANTOPRAZOLE [Concomitant]
     Route: 048
  5. BUSCOPAN [Concomitant]
     Route: 048
     Dates: start: 20070831, end: 20071007
  6. METOCLOPRAMIDE [Concomitant]
     Route: 048
     Dates: start: 20070831, end: 20071007

REACTIONS (2)
  - ABDOMINAL PAIN [None]
  - VOMITING [None]
